FAERS Safety Report 26058879 (Version 1)
Quarter: 2025Q4

REPORT INFORMATION
  Report Type: Spontaneous
  Country: EU (occurrence: EU)
  Receive Date: 20251118
  Receipt Date: 20251118
  Transmission Date: 20260117
  Serious: Yes (Hospitalization)
  Sender: AUROBINDO
  Company Number: EU-MINISAL02-1066180

PATIENT
  Age: 65 Year
  Sex: Female

DRUGS (3)
  1. LAMOTRIGINE [Suspect]
     Active Substance: LAMOTRIGINE
     Indication: Product used for unknown indication
     Dosage: INIZIATA IL 14/04/2025 25 MG LA SERA POI, DOPO 7 GG, 25 MG 2V DIE. DAL 05/05/2025 50 MG 2V DIE
     Dates: start: 20250414, end: 20250511
  2. VALPROATE SODIUM [Concomitant]
     Active Substance: VALPROATE SODIUM
     Indication: Product used for unknown indication
     Dosage: 800 MILLIGRAM
  3. RIVOTRIL [Concomitant]
     Active Substance: CLONAZEPAM
     Indication: Product used for unknown indication
     Dosage: 5 GTT DROPS

REACTIONS (1)
  - Skin reaction [Recovering/Resolving]

NARRATIVE: CASE EVENT DATE: 20250512
